FAERS Safety Report 14797731 (Version 1)
Quarter: 2018Q2

REPORT INFORMATION
  Report Type: Spontaneous
  Country: FI (occurrence: FI)
  Receive Date: 20180424
  Receipt Date: 20180424
  Transmission Date: 20180711
  Serious: Yes (Disabling)
  Sender: FDA-Public Use
  Company Number: FI-ACCORD-066130

PATIENT
  Age: 44 Year
  Sex: Female

DRUGS (2)
  1. CARBAMAZEPINE. [Suspect]
     Active Substance: CARBAMAZEPINE
     Indication: TEMPORAL LOBE EPILEPSY
  2. TOPIRAMATE. [Suspect]
     Active Substance: TOPIRAMATE
     Indication: TEMPORAL LOBE EPILEPSY

REACTIONS (8)
  - Snoring [Unknown]
  - Middle insomnia [Unknown]
  - Fatigue [Unknown]
  - Terminal insomnia [Unknown]
  - Depressed mood [Unknown]
  - Nervousness [Unknown]
  - Insomnia [Unknown]
  - Anxiety [Unknown]
